FAERS Safety Report 4767368-8 (Version None)
Quarter: 2005Q3

REPORT INFORMATION
  Report Type: 
  Country: None (occurrence: None)
  Receive Date: 20050913
  Receipt Date: 20050825
  Transmission Date: 20060218
  Serious: Yes (Life-Threatening, Hospitalization)
  Sender: FDA-Public Use
  Company Number: GB-ROCHE-415552

PATIENT
  Sex: Female

DRUGS (4)
  1. CELLCEPT [Suspect]
     Dosage: STOPPED WEEKS BEFORE SHE WAS HOSPITALISED.
     Route: 065
  2. AZATHIOPRINE [Concomitant]
     Dates: end: 20050315
  3. DEFLAZACORT [Concomitant]
  4. FELODIPINE [Concomitant]

REACTIONS (4)
  - CARDIOMYOPATHY [None]
  - EJECTION FRACTION DECREASED [None]
  - MULTI-ORGAN FAILURE [None]
  - RESPIRATORY FAILURE [None]
